FAERS Safety Report 24919419 (Version 1)
Quarter: 2025Q1

REPORT INFORMATION
  Report Type: Spontaneous
  Country: CA (occurrence: CA)
  Receive Date: 20250204
  Receipt Date: 20250204
  Transmission Date: 20250409
  Serious: Yes (Other)
  Sender: GE HEALTHCARE
  Company Number: CA-GE HEALTHCARE-2025CSU001140

PATIENT
  Age: 72 Year
  Sex: Female

DRUGS (3)
  1. OMNIPAQUE [Suspect]
     Active Substance: IOHEXOL
     Indication: Computerised tomogram
     Route: 040
  2. BENADRYL [Concomitant]
     Active Substance: DIPHENHYDRAMINE HYDROCHLORIDE
  3. PREDNISONE [Concomitant]
     Active Substance: PREDNISONE

REACTIONS (5)
  - Feeling abnormal [Unknown]
  - Malaise [Unknown]
  - Vision blurred [Unknown]
  - Hypotension [Unknown]
  - Feeling hot [Unknown]
